FAERS Safety Report 8895918 (Version 2)
Quarter: 2015Q3

REPORT INFORMATION
  Report Type: Spontaneous
  Country: US (occurrence: US)
  Receive Date: 20121107
  Receipt Date: 20150904
  Transmission Date: 20151125
  Serious: No
  Sender: FDA-Public Use
  Company Number: US-ASTRAZENECA-2012SE16387

PATIENT
  Age: 40 Year
  Sex: Female

DRUGS (2)
  1. ZOMIG ZMT [Suspect]
     Active Substance: ZOLMITRIPTAN
     Route: 048
  2. ZOMIG ZMT [Suspect]
     Active Substance: ZOLMITRIPTAN
     Route: 048
     Dates: start: 20120312

REACTIONS (2)
  - Drug dose omission [Unknown]
  - Migraine [Unknown]
